FAERS Safety Report 4352244-5 (Version None)
Quarter: 2004Q2

REPORT INFORMATION
  Report Type: 
  Country: None (occurrence: None)
  Receive Date: 20040428
  Receipt Date: 20040421
  Transmission Date: 20050107
  Serious: Yes (Life-Threatening)
  Sender: FDA-Public Use
  Company Number: GB-JNJFOC-20040405187

PATIENT
  Age: 69 Year
  Sex: Female
  Weight: 75 kg

DRUGS (5)
  1. HALDOL [Suspect]
     Indication: BIPOLAR DISORDER
     Dosage: 2.5-5MG AS NECESSARY
     Dates: start: 20040403, end: 20040405
  2. LORAZEPAM [Suspect]
     Indication: BIPOLAR DISORDER
     Dosage: 1 MG, IN 1 AS NECESSARY,ORAL
     Route: 048
     Dates: start: 20040329, end: 20040405
  3. LEVOTHYROXINE SODIUM [Concomitant]
  4. WARFARIN SODIUM [Concomitant]
  5. ACETAMINOPHEN [Concomitant]

REACTIONS (13)
  - APHASIA [None]
  - BALANCE DISORDER [None]
  - BLOOD PRESSURE SYSTOLIC INCREASED [None]
  - BODY TEMPERATURE INCREASED [None]
  - DEPRESSED LEVEL OF CONSCIOUSNESS [None]
  - DRUG INTERACTION [None]
  - GLASGOW COMA SCALE ABNORMAL [None]
  - HYPERHIDROSIS [None]
  - HYPERREFLEXIA [None]
  - HYPERTONIA [None]
  - MANIA [None]
  - MUSCLE RIGIDITY [None]
  - PUPILLARY REFLEX IMPAIRED [None]
